FAERS Safety Report 6317488-1 (Version None)
Quarter: 2009Q3

REPORT INFORMATION
  Report Type: 
  Country: None (occurrence: None)
  Receive Date: 20090821
  Receipt Date: 20090818
  Transmission Date: 20100115
  Serious: Yes (Life-Threatening, Hospitalization)
  Sender: FDA-Public Use
  Company Number: FR-JNJFOC-20090605827

PATIENT
  Sex: Male
  Weight: 72 kg

DRUGS (2)
  1. RISPERDAL CONSTA [Suspect]
     Indication: DRUG USE FOR UNKNOWN INDICATION
     Route: 030
  2. EQUANIL [Concomitant]
     Route: 065

REACTIONS (3)
  - JOINT SPRAIN [None]
  - PHLEBITIS [None]
  - PULMONARY EMBOLISM [None]
